APPROVED DRUG PRODUCT: BYLVAY
Active Ingredient: ODEVIXIBAT
Strength: 0.6MG
Dosage Form/Route: CAPSULE, PELLETS;ORAL
Application: N215498 | Product #003
Applicant: IPSEN BIOPHARMACEUTICALS INC
Approved: Jul 20, 2021 | RLD: Yes | RS: Yes | Type: RX

PATENTS:
Patent 12508234 | Expires: Jun 20, 2039
Patent 12508234 | Expires: Jun 20, 2039
Patent 10981952 | Expires: Nov 8, 2031
Patent 10981952 | Expires: Nov 8, 2031
Patent 10487111 | Expires: Nov 8, 2031
Patent 10011633 | Expires: Nov 8, 2031
Patent 10093697 | Expires: Nov 8, 2031
Patent 9694018 | Expires: Nov 8, 2031
Patent 12447156 | Expires: Nov 12, 2041
Patent 11583539 | Expires: Nov 12, 2041
Patent 10093697 | Expires: Nov 8, 2031
Patent 10011633 | Expires: Nov 8, 2031
Patent 9694018 | Expires: Nov 8, 2031
Patent 11732006 | Expires: Nov 8, 2031
Patent 11732006 | Expires: Nov 8, 2031
Patent 12187812 | Expires: Nov 8, 2031
Patent 12187812 | Expires: Nov 8, 2031
Patent 11365182 | Expires: Jun 20, 2039
Patent 10981952 | Expires: Nov 8, 2031
Patent 10981952 | Expires: Nov 8, 2031
Patent 10487111 | Expires: Nov 8, 2031
Patent 11365182 | Expires: Jun 20, 2039
Patent 11801226 | Expires: Jun 20, 2039
Patent 12091394 | Expires: Jun 20, 2039
Patent 10975046 | Expires: Jun 20, 2039
Patent 11802115 | Expires: Jun 20, 2039

EXCLUSIVITY:
Code: I-918 | Date: Jun 13, 2026
Code: NCE | Date: Jul 20, 2026
Code: ODE-363 | Date: Jul 20, 2028
Code: ODE-436 | Date: Jun 13, 2030